FAERS Safety Report 10092533 (Version 1)
Quarter: 2014Q2

REPORT INFORMATION
  Report Type: Spontaneous
  Country: US (occurrence: US)
  Receive Date: 20140421
  Receipt Date: 20140421
  Transmission Date: 20141212
  Serious: No
  Sender: FDA-Public Use
  Company Number: US-SANOFI-AVENTIS-2013SA034525

PATIENT
  Age: 49 Year
  Sex: Male
  Weight: 80.73 kg

DRUGS (2)
  1. ALLEGRA [Suspect]
     Indication: HYPERSENSITIVITY
     Route: 048
  2. AVODART [Concomitant]

REACTIONS (1)
  - Drug ineffective [Unknown]
